FAERS Safety Report 5013022-7 (Version None)
Quarter: 2006Q2

REPORT INFORMATION
  Report Type: 
  Country: None (occurrence: None)
  Receive Date: 20060530
  Receipt Date: 20060131
  Transmission Date: 20061013
  Serious: No
  Sender: FDA-Public Use
  Company Number: US-GLAXOSMITHKLINE-A0591896A

PATIENT
  Age: 53 Year
  Sex: Female
  Weight: 77.7 kg

DRUGS (4)
  1. WELLBUTRIN XL [Suspect]
     Indication: DEPRESSION
     Dosage: 300MG PER DAY
     Route: 048
     Dates: start: 20040109, end: 20060130
  2. ZOLOFT [Concomitant]
     Indication: DEPRESSION
     Dosage: 200MG PER DAY
  3. GEODON [Concomitant]
     Dosage: 40MG PER DAY
  4. KLONOPIN [Concomitant]
     Indication: POST-TRAUMATIC STRESS DISORDER
     Dosage: 1MG AT NIGHT

REACTIONS (2)
  - ABDOMINAL DISTENSION [None]
  - SINUSITIS [None]
